FAERS Safety Report 5153750-6 (Version None)
Quarter: 2006Q4

REPORT INFORMATION
  Report Type: 
  Country: None (occurrence: None)
  Receive Date: 20061120
  Receipt Date: 20060919
  Transmission Date: 20070319
  Serious: Yes (Death, Hospitalization)
  Sender: FDA-Public Use
  Company Number: US-ELI_LILLY_AND_COMPANY-US200609005870

PATIENT
  Age: 52 Year
  Sex: Female
  Weight: 122.45 kg

DRUGS (2)
  1. ZYPREXA [Suspect]
     Indication: DEPRESSION
     Dosage: 5 MG, UNK
     Route: 048
     Dates: start: 20030601, end: 20050301
  2. ZYPREXA [Suspect]
     Dosage: 10 MG, UNK
     Route: 048
     Dates: start: 20030601, end: 20050301

REACTIONS (4)
  - CHEST PAIN [None]
  - DEATH [None]
  - DIABETES MELLITUS [None]
  - HYPERGLYCAEMIA [None]
